FAERS Safety Report 14987869 (Version 5)
Quarter: 2020Q2

REPORT INFORMATION
  Report Type: Spontaneous
  Country: SE (occurrence: SE)
  Receive Date: 20180608
  Receipt Date: 20200507
  Transmission Date: 20200713
  Serious: Yes (Hospitalization)
  Sender: FDA-Public Use
  Company Number: SE-CELGENEUS-SWE-20180510284

PATIENT
  Age: 80 Year
  Sex: Male
  Weight: 84.2 kg

DRUGS (21)
  1. PLACEBO [Concomitant]
     Active Substance: UNSPECIFIED INGREDIENT
     Route: 048
     Dates: start: 20171124, end: 20171124
  2. BETNOVAT [Concomitant]
     Active Substance: BETAMETHASONE
     Indication: RASH
     Route: 065
     Dates: start: 20171124
  3. PANTOPRAZOLE [Concomitant]
     Active Substance: PANTOPRAZOLE
     Dosage: 40 MILLIGRAM
     Route: 048
     Dates: start: 20180426
  4. AZACITIDINE. [Suspect]
     Active Substance: AZACITIDINE
     Dosage: 75 MILLIGRAM/SQ. METER
     Route: 058
     Dates: start: 20180321, end: 20180418
  5. PLACEBO [Concomitant]
     Active Substance: UNSPECIFIED INGREDIENT
     Route: 048
     Dates: start: 20171125, end: 20180424
  6. CETIRIZIN [Concomitant]
     Active Substance: CETIRIZINE HYDROCHLORIDE
     Indication: URTICARIA
     Route: 048
     Dates: start: 20180209
  7. PANTOPRAZOLE [Concomitant]
     Active Substance: PANTOPRAZOLE
     Indication: PROPHYLAXIS
     Dosage: 40 MILLIGRAM
     Route: 048
     Dates: start: 20180319, end: 20180419
  8. PANODIL [Concomitant]
     Active Substance: ACETAMINOPHEN
     Indication: PYREXIA
     Route: 048
     Dates: start: 20180401
  9. AMOXICILLIN. [Concomitant]
     Active Substance: AMOXICILLIN
     Indication: ENTEROCOCCAL SEPSIS
     Dosage: 1500 MILLIGRAM
     Route: 048
     Dates: start: 20180518, end: 20180522
  10. AMOXICILLIN. [Concomitant]
     Active Substance: AMOXICILLIN
     Indication: INFECTION PROPHYLAXIS
     Dosage: 1500 MILLIGRAM
     Route: 048
     Dates: start: 20180425, end: 20180503
  11. PLACEBO [Concomitant]
     Active Substance: UNSPECIFIED INGREDIENT
     Indication: ACUTE MYELOID LEUKAEMIA
     Route: 048
     Dates: start: 20171123, end: 20171123
  12. TRANEXAMSYRA [Concomitant]
     Indication: HAEMORRHAGE PROPHYLAXIS
  13. BETAPRED [Concomitant]
     Active Substance: BETAMETHASONE SODIUM PHOSPHATE
     Indication: URTICARIA
     Route: 048
     Dates: start: 20180209
  14. OXYNORM [Concomitant]
     Active Substance: OXYCODONE HYDROCHLORIDE
     Indication: BACK PAIN
     Route: 048
     Dates: start: 20180421
  15. MORPHINE [Suspect]
     Active Substance: MORPHINE
     Indication: PRODUCT USED FOR UNKNOWN INDICATION
     Route: 065
  16. ALLOPURINOL. [Concomitant]
     Active Substance: ALLOPURINOL
     Indication: PROPHYLAXIS
     Route: 048
     Dates: start: 20171116, end: 20180419
  17. METOPROLOL. [Concomitant]
     Active Substance: METOPROLOL
     Indication: HYPERTENSION
     Dosage: 50 MILLIGRAM
     Route: 048
     Dates: start: 19990101
  18. AZACITIDINE. [Suspect]
     Active Substance: AZACITIDINE
     Indication: ACUTE MYELOID LEUKAEMIA
     Dosage: 75 MILLIGRAM/SQ. METER
     Route: 058
     Dates: start: 20171123, end: 20180221
  19. TRANEXAMSYRA [Concomitant]
     Indication: ANAL HAEMORRHAGE
     Dosage: 3000 MILLIGRAM
     Route: 048
     Dates: start: 20180319, end: 20180518
  20. ALFUZOSIN [Concomitant]
     Active Substance: ALFUZOSIN
     Indication: PROSTATIC DISORDER
     Dosage: 10 MILLIGRAM
     Route: 048
     Dates: start: 20010101
  21. FINASTERIDE. [Concomitant]
     Active Substance: FINASTERIDE
     Indication: PROSTATIC DISORDER
     Dosage: 5 MILLIGRAM
     Route: 048
     Dates: start: 20010101

REACTIONS (1)
  - Urinary retention [Recovered/Resolved]

NARRATIVE: CASE EVENT DATE: 20180518
